FAERS Safety Report 4433633-7 (Version None)
Quarter: 2004Q3

REPORT INFORMATION
  Report Type: 
  Country: None (occurrence: None)
  Receive Date: 20040825
  Receipt Date: 20040825
  Transmission Date: 20050211
  Serious: Yes (Hospitalization)
  Sender: FDA-Public Use
  Company Number: None

PATIENT
  Age: 54 Year
  Sex: Female
  Weight: 111.5849 kg

DRUGS (11)
  1. SEROQUEL [Suspect]
     Dosage: 300 MG PO
     Route: 048
     Dates: start: 20030101, end: 20040301
  2. HUMMILIN 70/30 [Concomitant]
  3. SYNTHROID [Concomitant]
  4. TOPROL-XL [Concomitant]
  5. K+ CLOR [Concomitant]
  6. BUMEX [Concomitant]
  7. ALLEGRA [Concomitant]
  8. RHINOCORT [Concomitant]
  9. SINGULAIR [Concomitant]
  10. O2 [Concomitant]
  11. ALBUTEROL [Concomitant]

REACTIONS (1)
  - PANCYTOPENIA [None]
